FAERS Safety Report 8169212-8 (Version None)
Quarter: 2012Q1

REPORT INFORMATION
  Report Type: 
  Country: None (occurrence: None)
  Receive Date: 20120227
  Receipt Date: 20120222
  Transmission Date: 20120608
  Serious: Yes (Death)
  Sender: FDA-Public Use
  Company Number: RU-ASTRAZENECA-2011SE59835

PATIENT
  Age: 10616 Day
  Sex: Female

DRUGS (4)
  1. NAROPIN [Suspect]
     Indication: EPIDURAL ANAESTHESIA
     Route: 037
     Dates: start: 20110920
  2. DIPHENHYDRAMINE HCL [Concomitant]
  3. LIDOCAINE [Concomitant]
  4. ATROPINE [Concomitant]

REACTIONS (6)
  - CARDIOPULMONARY FAILURE [None]
  - ADVERSE DRUG REACTION [None]
  - ANAPHYLACTIC SHOCK [None]
  - TACHYCARDIA [None]
  - DYSPNOEA [None]
  - BLOOD PRESSURE DECREASED [None]
